FAERS Safety Report 11050020 (Version 3)
Quarter: 2015Q2

REPORT INFORMATION
  Report Type: Spontaneous
  Country: DO (occurrence: DO)
  Receive Date: 20150420
  Receipt Date: 20150518
  Transmission Date: 20150821
  Serious: Yes (Hospitalization)
  Sender: FDA-Public Use
  Company Number: ALCN2015DO002487

PATIENT
  Age: 58 Year
  Sex: Male

DRUGS (1)
  1. BSS [Suspect]
     Active Substance: CALCIUM CHLORIDE\MAGNESIUM CHLORIDE\POTASSIUM CHLORIDE\SODIUM ACETATE\SODIUM CHLORIDE\SODIUM CITRATE
     Indication: CATARACT OPERATION
     Dosage: UNK
     Route: 065
     Dates: start: 20150312, end: 20150312

REACTIONS (2)
  - Endophthalmitis [Recovered/Resolved]
  - Cellulitis orbital [Recovered/Resolved]

NARRATIVE: CASE EVENT DATE: 20150313
